FAERS Safety Report 5775454-9 (Version None)
Quarter: 2008Q2

REPORT INFORMATION
  Report Type: 
  Country: None (occurrence: None)
  Receive Date: 20080617
  Receipt Date: 20080609
  Transmission Date: 20081010
  Serious: Yes (Other)
  Sender: FDA-Public Use
  Company Number: PHBS2007JP18742

PATIENT
  Age: 14 Year
  Sex: Female

DRUGS (4)
  1. SIMULECT [Suspect]
     Indication: RENAL TRANSPLANT
     Dosage: 20 MG
     Route: 042
  2. TACROLIMUS [Suspect]
     Indication: RENAL TRANSPLANT
     Dosage: UNK
     Route: 065
  3. CELLCEPT [Concomitant]
     Indication: RENAL TRANSPLANT
     Dosage: UNK
     Route: 048
  4. STEROIDS NOS [Concomitant]
     Indication: RENAL TRANSPLANT
     Route: 065

REACTIONS (2)
  - CONVULSION [None]
  - ENCEPHALOPATHY [None]
